FAERS Safety Report 4348468-3 (Version None)
Quarter: 2004Q2

REPORT INFORMATION
  Report Type: 
  Country: None (occurrence: None)
  Receive Date: 20040422
  Receipt Date: 20040413
  Transmission Date: 20050107
  Serious: Yes (Hospitalization)
  Sender: FDA-Public Use
  Company Number: 2004-04-0126

PATIENT
  Age: 60 Year
  Sex: Male

DRUGS (12)
  1. NITRO-DUR [Suspect]
     Indication: ANGINA UNSTABLE
     Dosage: SEE IMAGE
     Route: 062
     Dates: start: 20000101, end: 20020101
  2. NITRO-DUR [Suspect]
     Indication: SURGERY
     Dosage: SEE IMAGE
     Route: 062
     Dates: start: 20000101, end: 20020101
  3. NITRO-DUR [Suspect]
     Indication: ANGINA UNSTABLE
     Dosage: SEE IMAGE
     Route: 062
     Dates: start: 20020101, end: 20030101
  4. NITRO-DUR [Suspect]
     Indication: SURGERY
     Dosage: SEE IMAGE
     Route: 062
     Dates: start: 20020101, end: 20030101
  5. NITRO-DUR [Suspect]
     Indication: ANGINA UNSTABLE
     Dosage: SEE IMAGE
     Route: 062
     Dates: start: 20000101, end: 20040329
  6. NITRO-DUR [Suspect]
     Indication: SURGERY
     Dosage: SEE IMAGE
     Route: 062
     Dates: start: 20000101, end: 20040329
  7. NITRO-DUR [Suspect]
     Indication: ANGINA UNSTABLE
     Dosage: SEE IMAGE
     Route: 062
     Dates: start: 20031101, end: 20040329
  8. NITRO-DUR [Suspect]
     Indication: SURGERY
     Dosage: SEE IMAGE
     Route: 062
     Dates: start: 20031101, end: 20040329
  9. IODINE TOPICALS [Suspect]
     Indication: SURGERY
     Dosage: TOP-DERM
     Route: 061
     Dates: start: 20040329, end: 20040329
  10. COZAAR [Concomitant]
  11. GOPTEN (TRANDOLAPRIL) [Concomitant]
  12. UNSPECIFIED THERAPEUTIC AGENT FOR BLOOD THINNING [Concomitant]

REACTIONS (1)
  - APPLICATION SITE DERMATITIS [None]
